FAERS Safety Report 24830523 (Version 1)
Quarter: 2025Q1

REPORT INFORMATION
  Report Type: Spontaneous
  Country: US (occurrence: None)
  Receive Date: 20250109
  Receipt Date: 20250109
  Transmission Date: 20250409
  Serious: Yes (Hospitalization)
  Sender: FDA-CTU
  Company Number: None

PATIENT
  Sex: Male

DRUGS (2)
  1. TRETINOIN [Suspect]
     Active Substance: TRETINOIN
     Indication: Acute promyelocytic leukaemia
     Dosage: 70 MG TWICE DAILY ON 1-14 ORAL
     Route: 048
     Dates: start: 20240422
  2. ARSENIC [Suspect]
     Active Substance: ARSENIC

REACTIONS (7)
  - Paraesthesia [None]
  - Headache [None]
  - Gait disturbance [None]
  - Pericardial effusion [None]
  - Hypoaesthesia [None]
  - Hypoaesthesia [None]
  - Nonspecific reaction [None]
